FAERS Safety Report 7496661-3 (Version None)
Quarter: 2011Q2

REPORT INFORMATION
  Report Type: 
  Country: None (occurrence: None)
  Receive Date: 20110523
  Receipt Date: 20110513
  Transmission Date: 20111010
  Serious: Yes (Other)
  Sender: FDA-Public Use
  Company Number: A0928129A

PATIENT
  Age: 22 Year
  Sex: Male

DRUGS (3)
  1. CONCURRENT MEDICATIONS [Concomitant]
  2. UNSPECIFIED TREATMENT [Suspect]
  3. REQUIP [Suspect]
     Indication: PARKINSON'S DISEASE
     Route: 048

REACTIONS (14)
  - NAUSEA [None]
  - FATIGUE [None]
  - GENERAL PHYSICAL HEALTH DETERIORATION [None]
  - DYSARTHRIA [None]
  - CONVULSION [None]
  - CEREBROSPINAL FLUID DRAINAGE [None]
  - LYME DISEASE [None]
  - WEIGHT DECREASED [None]
  - INFECTION [None]
  - INSOMNIA [None]
  - ACTIVITIES OF DAILY LIVING IMPAIRED [None]
  - WEIGHT INCREASED [None]
  - DYSKINESIA [None]
  - BALANCE DISORDER [None]
